FAERS Safety Report 9866064 (Version 2)
Quarter: 2014Q1

REPORT INFORMATION
  Report Type: Spontaneous
  Country: US (occurrence: US)
  Receive Date: 20140203
  Receipt Date: 20140203
  Transmission Date: 20141002
  Serious: No
  Sender: FDA-Public Use
  Company Number: US-ALLERGAN-1315704US

PATIENT
  Age: 60 Year
  Sex: Male

DRUGS (8)
  1. RESTASIS [Suspect]
     Indication: DRY EYE
     Dosage: 2 GTT, BID
     Route: 047
     Dates: start: 20130904
  2. REFRESH LUBRICANT OPHTHALMIC SOLUTION [Concomitant]
     Indication: PRODUCT USED FOR UNKNOWN INDICATION
  3. REFRESH CELLUVISC SOLUTION [Concomitant]
     Indication: PRODUCT USED FOR UNKNOWN INDICATION
  4. SYSTANE BALANCE [Concomitant]
     Indication: PRODUCT USED FOR UNKNOWN INDICATION
  5. ASPIRIN [Concomitant]
     Indication: PRODUCT USED FOR UNKNOWN INDICATION
  6. FISH OIL [Concomitant]
     Indication: PRODUCT USED FOR UNKNOWN INDICATION
  7. LIPITOR [Concomitant]
     Indication: PRODUCT USED FOR UNKNOWN INDICATION
  8. JALYN [Concomitant]
     Indication: PROSTATIC DISORDER

REACTIONS (2)
  - Chest pain [Unknown]
  - Pain in extremity [Recovered/Resolved]
